FAERS Safety Report 9000685 (Version 2)
Quarter: 2013Q3

REPORT INFORMATION
  Report Type: Spontaneous
  Country: FR (occurrence: None)
  Receive Date: 20121226
  Receipt Date: 20130711
  Transmission Date: 20140515
  Serious: Yes (Death, Hospitalization, Other)
  Sender: FDA-Public Use
  Company Number: 2012MPI00597

PATIENT
  Age: 56 Year
  Sex: Male

DRUGS (5)
  1. BRENTUXIMAB VEDOTIN [Suspect]
     Indication: HODGKIN^S DISEASE STAGE IV
     Dosage: 1.8 MG/KG, Q12D, INTRAVENOUS
     Route: 042
     Dates: start: 20121005, end: 20121005
  2. CEFTRIAXONE (CEFTRIAXONE SODIUM) [Concomitant]
  3. CIFLOX (CIPROFLOXACIN) [Concomitant]
  4. GENTAMICINE (GENTAMICIN) [Concomitant]
  5. GRANOCYTE (LENOGRASTIM) [Concomitant]

REACTIONS (10)
  - Pancytopenia [None]
  - Pyrexia [None]
  - Escherichia bacteraemia [None]
  - Convulsion [None]
  - Febrile bone marrow aplasia [None]
  - Disease progression [None]
  - General physical health deterioration [None]
  - Night sweats [None]
  - Hepatomegaly [None]
  - Pseudomonal sepsis [None]
